FAERS Safety Report 19236737 (Version 5)
Quarter: 2021Q3

REPORT INFORMATION
  Report Type: Report from Study
  Country: CN (occurrence: CN)
  Receive Date: 20210510
  Receipt Date: 20210803
  Transmission Date: 20211014
  Serious: Yes (Death, Hospitalization)
  Sender: FDA-Public Use
  Company Number: CN-KARYOPHARM THERAPEUTICS, INC.-2021KPT000631

PATIENT
  Age: 59 Year
  Sex: Male

DRUGS (4)
  1. SELINEXOR [Suspect]
     Active Substance: SELINEXOR
     Indication: T-CELL LYMPHOMA STAGE IV
     Dosage: 60 MG, QD
     Route: 048
     Dates: start: 20210320, end: 20210320
  2. CARBOPLATIN. [Suspect]
     Active Substance: CARBOPLATIN
     Indication: T-CELL LYMPHOMA STAGE IV
     Dosage: 549 MG, QD
     Route: 041
     Dates: start: 20210321, end: 20210321
  3. ETOPOSIDE. [Suspect]
     Active Substance: ETOPOSIDE
     Indication: T-CELL LYMPHOMA STAGE IV
     Dosage: 129 MG, QD
     Route: 042
     Dates: start: 20210320, end: 20210322
  4. IFOSFAMIDE. [Suspect]
     Active Substance: IFOSFAMIDE
     Indication: T-CELL LYMPHOMA STAGE IV
     Dosage: 2.16 G, QD
     Route: 041
     Dates: start: 20210320, end: 20210322

REACTIONS (5)
  - Lower gastrointestinal haemorrhage [Not Recovered/Not Resolved]
  - Platelet count decreased [Recovered/Resolved]
  - Haemophagocytic lymphohistiocytosis [Not Recovered/Not Resolved]
  - Pneumonia [Fatal]
  - Febrile neutropenia [Recovered/Resolved]

NARRATIVE: CASE EVENT DATE: 20210329
